FAERS Safety Report 7405218-1 (Version None)
Quarter: 2011Q2

REPORT INFORMATION
  Report Type: 
  Country: None (occurrence: None)
  Receive Date: 20110411
  Receipt Date: 20110404
  Transmission Date: 20111010
  Serious: Yes (Other)
  Sender: FDA-Public Use
  Company Number: DE-BAYER-2011-026058

PATIENT
  Age: 72 Year
  Sex: Female
  Weight: 72 kg

DRUGS (2)
  1. BONEFOS [Suspect]
     Indication: METASTASES TO BONE
     Dosage: 1600 MG, QD
  2. MIRENA [Concomitant]
     Dosage: 20 +#956;G/24HRS
     Route: 015

REACTIONS (1)
  - OSTEONECROSIS OF JAW [None]
